FAERS Safety Report 5924053-4 (Version None)
Quarter: 2008Q4

REPORT INFORMATION
  Report Type: 
  Country: None (occurrence: None)
  Receive Date: 20081020
  Receipt Date: 20081015
  Transmission Date: 20090506
  Serious: Yes (Life-Threatening, Hospitalization, Other)
  Sender: FDA-Public Use
  Company Number: PHEH2008US06839

PATIENT
  Sex: Female
  Weight: 113.38 kg

DRUGS (13)
  1. RECLAST [Suspect]
     Indication: OSTEOPOROSIS
     Dosage: 5 MG YEARLY
     Route: 042
     Dates: start: 20080724
  2. METHOTREXATE [Concomitant]
     Indication: RHEUMATOID ARTHRITIS
     Dosage: 15 MG WEEKLY
  3. HUMIRA [Concomitant]
     Indication: RHEUMATOID ARTHRITIS
     Dosage: 40 MG Q OTHER WEEK
  4. CALCIUM [Concomitant]
  5. VITAMIN D [Concomitant]
  6. ZEGERID [Concomitant]
  7. FOLIC ACID [Concomitant]
  8. ACTONEL [Concomitant]
  9. ZOLOFT [Concomitant]
  10. AMBIEN [Concomitant]
  11. COZAAR [Concomitant]
  12. LIPITOR [Concomitant]
  13. LABETALOL HCL [Concomitant]

REACTIONS (6)
  - ACUTE MYOCARDIAL INFARCTION [None]
  - BLOOD CREATINE PHOSPHOKINASE MB INCREASED [None]
  - CEREBROVASCULAR ACCIDENT [None]
  - ECHOCARDIOGRAM ABNORMAL [None]
  - NUCLEAR MAGNETIC RESONANCE IMAGING ABNORMAL [None]
  - TROPONIN INCREASED [None]
